FAERS Safety Report 16956423 (Version 1)
Quarter: 2019Q4

REPORT INFORMATION
  Report Type: Spontaneous
  Country: US (occurrence: US)
  Receive Date: 20191023
  Receipt Date: 20191023
  Transmission Date: 20200122
  Serious: Yes (Other)
  Sender: FDA-Public Use
  Company Number: None

PATIENT
  Age: 60 Year
  Sex: Female
  Weight: 103.5 kg

DRUGS (11)
  1. DILTIAZEM. [Concomitant]
     Active Substance: DILTIAZEM
  2. INSULIN LISPRO [Concomitant]
     Active Substance: INSULIN LISPRO
  3. ROSUVASTATIN. [Concomitant]
     Active Substance: ROSUVASTATIN
  4. TRAMADOL. [Concomitant]
     Active Substance: TRAMADOL
  5. TRESIBA FLEXTOUCH U-200 [Concomitant]
  6. FOSINOPRIL [Concomitant]
     Active Substance: FOSINOPRIL
  7. OMEPRAZOLE. [Concomitant]
     Active Substance: OMEPRAZOLE
  8. AUSTEDO [Suspect]
     Active Substance: DEUTETRABENAZINE
     Indication: TARDIVE DYSKINESIA
     Route: 048
     Dates: start: 20190727
  9. KLONOPIN [Concomitant]
     Active Substance: CLONAZEPAM
  10. LEVOTHYROXINE. [Concomitant]
     Active Substance: LEVOTHYROXINE
  11. CYMBALTA [Concomitant]
     Active Substance: DULOXETINE HYDROCHLORIDE

REACTIONS (2)
  - Hepatomegaly [None]
  - Abdominal pain upper [None]

NARRATIVE: CASE EVENT DATE: 20191023
